FAERS Safety Report 4855221-0 (Version None)
Quarter: 2005Q4

REPORT INFORMATION
  Report Type: 
  Country: None (occurrence: None)
  Receive Date: 20051125
  Receipt Date: 20050830
  Transmission Date: 20060501
  Serious: Yes (Other)
  Sender: FDA-Public Use
  Company Number: US-JNJFOC-20050803057

PATIENT
  Sex: Female

DRUGS (2)
  1. LEVAQUIN [Suspect]
     Indication: SINUSITIS
     Dates: start: 20050701, end: 20050701
  2. PHERGAN (PROMETHAZINE HYDROCHLORIDE) [Concomitant]

REACTIONS (1)
  - ANAPHYLACTIC REACTION [None]
